FAERS Safety Report 23524790 (Version 1)
Quarter: 2024Q1

REPORT INFORMATION
  Report Type: Spontaneous
  Country: US (occurrence: US)
  Receive Date: 20240215
  Receipt Date: 20240215
  Transmission Date: 20240409
  Serious: No
  Sender: FDA-Public Use
  Company Number: US-GE HEALTHCARE-2024CSU001047

PATIENT
  Age: 74 Year

DRUGS (8)
  1. DATSCAN [Suspect]
     Active Substance: IODINE\IOFLUPANE I-123
     Indication: Diagnostic procedure
     Dosage: 148 MBQ, TOTAL
     Route: 065
     Dates: start: 20240130, end: 20240130
  2. TAMSULOSIN [Concomitant]
     Active Substance: TAMSULOSIN
     Dosage: UNK
  3. METOPROLOL [Concomitant]
     Active Substance: METOPROLOL
     Dosage: UNK
  4. ESCITALOPRAM OXALATE [Concomitant]
     Active Substance: ESCITALOPRAM OXALATE
     Dosage: UNK
  5. SENNA TIME [Concomitant]
     Active Substance: SENNOSIDES A AND B
     Dosage: UNK
  6. ASPIRIN [Concomitant]
     Active Substance: ASPIRIN
     Dosage: UNK
  7. HYDROCHLOROTHIAZIDE [Concomitant]
     Active Substance: HYDROCHLOROTHIAZIDE
     Dosage: UNK
  8. LISINOPRIL [Concomitant]
     Active Substance: LISINOPRIL
     Dosage: UNK

REACTIONS (2)
  - Drug ineffective [Recovered/Resolved]
  - No adverse event [Recovered/Resolved]

NARRATIVE: CASE EVENT DATE: 20240130
